FAERS Safety Report 9198399 (Version 1)
Quarter: 2013Q1

REPORT INFORMATION
  Report Type: Spontaneous
  Country: IE (occurrence: IE)
  Receive Date: 20130329
  Receipt Date: 20130329
  Transmission Date: 20140127
  Serious: Yes (Hospitalization)
  Sender: FDA-Public Use
  Company Number: IE-AMGEN-IRLSP2013020838

PATIENT
  Sex: Male

DRUGS (11)
  1. PROLIA [Suspect]
     Indication: BONE LOSS
     Dosage: 60 MG, Q6MO
     Route: 058
  2. AMIODARONE HYDROCHLORIDE [Concomitant]
     Indication: HYPERTENSION
     Route: 048
  3. NEXIUM                             /01479302/ [Concomitant]
     Indication: PROPHYLAXIS AGAINST GASTROINTESTINAL ULCER
     Dosage: 40 MG, QD
     Route: 048
  4. FRUMIL [Concomitant]
     Indication: HYPERTENSION
     Dosage: 8 MG, QD
     Route: 048
  5. FRUMIL [Concomitant]
     Indication: FLUID RETENTION
  6. MOVICOL                            /01625101/ [Concomitant]
     Dosage: UNK
  7. VENTOLIN RESPIRATOR [Concomitant]
     Indication: RESPIRATORY DISORDER
     Dosage: UNK UNK, AS NECESSARY
  8. LIPITOR [Concomitant]
     Indication: HYPERCHOLESTEROLAEMIA
     Dosage: 20 MG, QD
     Route: 048
  9. ASPIRIN [Concomitant]
     Indication: COAGULOPATHY
     Dosage: 75 MG, QD
     Route: 048
  10. SPIRIVA [Concomitant]
     Indication: CHOLINERGIC SYNDROME
     Dosage: 18 MUG, UNK
     Route: 048
  11. XALATAN [Concomitant]
     Indication: OCULAR HYPERTENSION
     Dosage: UNK UNK, QHS
     Route: 047

REACTIONS (3)
  - Blood calcium decreased [Unknown]
  - Dyspnoea [Unknown]
  - Lethargy [Unknown]
